FAERS Safety Report 8564536-4 (Version None)
Quarter: 2012Q3

REPORT INFORMATION
  Report Type: 
  Country: None (occurrence: None)
  Receive Date: 20120803
  Receipt Date: 20120724
  Transmission Date: 20120928
  Serious: Yes (Disabling, Other)
  Sender: FDA-Public Use
  Company Number: US-009507513-1010USA03509

PATIENT

DRUGS (1)
  1. FOSAMAX [Suspect]
     Indication: OSTEOPENIA
     Dosage: 70 MG, QW
     Route: 048
     Dates: start: 19960101, end: 20080705

REACTIONS (4)
  - BONE DENSITY DECREASED [None]
  - VITAMIN D DEFICIENCY [None]
  - FEMUR FRACTURE [None]
  - ADVERSE EVENT [None]
